FAERS Safety Report 18753573 (Version 1)
Quarter: 2021Q1

REPORT INFORMATION
  Report Type: Report from Study
  Country: BR (occurrence: BR)
  Receive Date: 20210118
  Receipt Date: 20210118
  Transmission Date: 20210419
  Serious: Yes (Other)
  Sender: FDA-Public Use
  Company Number: BR-JNJFOC-20210123163

PATIENT
  Age: 9 Decade
  Sex: Female
  Weight: 60 kg

DRUGS (2)
  1. STELARA [Suspect]
     Active Substance: USTEKINUMAB
  2. STELARA [Suspect]
     Active Substance: USTEKINUMAB
     Indication: PSORIASIS
     Dosage: WEEKS 0,4 AND EVERY 12 WEEKS
     Route: 058
     Dates: start: 201902

REACTIONS (2)
  - Tuberculosis [Unknown]
  - Psoriasis [Unknown]
